FAERS Safety Report 14110560 (Version 1)
Quarter: 2017Q4

REPORT INFORMATION
  Report Type: Spontaneous
  Country: FI (occurrence: FI)
  Receive Date: 20171020
  Receipt Date: 20171020
  Transmission Date: 20180321
  Serious: Yes (Disabling)
  Sender: FDA-Public Use
  Company Number: FI-NAPPMUNDI-GBR-2017-0049847

PATIENT

DRUGS (3)
  1. TARGINIQ ER [Suspect]
     Active Substance: NALOXONE HYDROCHLORIDE\OXYCODONE HYDROCHLORIDE
     Indication: PROCEDURAL PAIN
     Dosage: STRENGTH 5 MG/2,5 MG, DOSE: 4
     Route: 048
     Dates: start: 20170916, end: 20170921
  2. PANADOL [Concomitant]
     Active Substance: ACETAMINOPHEN
     Dosage: DOSE: 6
  3. BURANA [Concomitant]
     Active Substance: IBUPROFEN
     Dosage: DOSE: 3

REACTIONS (1)
  - Deafness unilateral [Unknown]

NARRATIVE: CASE EVENT DATE: 20170920
